FAERS Safety Report 4567086-5 (Version None)
Quarter: 2005Q1

REPORT INFORMATION
  Report Type: 
  Country: None (occurrence: None)
  Receive Date: 20050126
  Receipt Date: 20050106
  Transmission Date: 20050727
  Serious: Yes (Death, Other)
  Sender: FDA-Public Use
  Company Number: USA050187701

PATIENT
  Age: 54 Year
  Sex: Male

DRUGS (3)
  1. ALIMTA [Suspect]
     Indication: NON-SMALL CELL LUNG CANCER
     Dosage: 880 MG
     Dates: start: 20041228
  2. VITAMIN SUPPLEMENTATION [Concomitant]
  3. DEXAMETHASONE [Concomitant]

REACTIONS (1)
  - HAEMATEMESIS [None]
